FAERS Safety Report 8211682-0 (Version None)
Quarter: 2012Q1

REPORT INFORMATION
  Report Type: 
  Country: None (occurrence: None)
  Receive Date: 20120229
  Receipt Date: 20100521
  Transmission Date: 20120608
  Serious: Yes (Disabling)
  Sender: FDA-Public Use
  Company Number: PHHY2010US30752

PATIENT
  Sex: Male
  Weight: 190 kg

DRUGS (7)
  1. LIPITOR [Concomitant]
  2. RAMIPRIL [Concomitant]
  3. BACLOFEN [Suspect]
  4. METOPROLOL TARTRATE [Concomitant]
  5. TEGRETOL [Suspect]
     Indication: TRIGEMINAL NEURALGIA
     Dosage: 100 MG, Q3H 100 MG, Q3H, ORAL
     Route: 048
     Dates: start: 20100101
  6. TEGRETOL [Suspect]
     Indication: TRIGEMINAL NEURALGIA
     Dosage: 100 MG, Q3H 100 MG, Q3H, ORAL
     Route: 048
     Dates: start: 20090101
  7. NEURONTIN [Suspect]
     Indication: TRIGEMINAL NEURALGIA
     Dosage: 100 MG, TID PRN

REACTIONS (2)
  - PERSONALITY CHANGE [None]
  - EJACULATION FAILURE [None]
